FAERS Safety Report 6707134-7 (Version None)
Quarter: 2010Q2

REPORT INFORMATION
  Report Type: 
  Country: None (occurrence: None)
  Receive Date: 20100503
  Receipt Date: 20100423
  Transmission Date: 20101027
  Serious: Yes (Life-Threatening)
  Sender: FDA-Public Use
  Company Number: SE-BRISTOL-MYERS SQUIBB COMPANY-15087398

PATIENT
  Age: 52 Year
  Sex: Female

DRUGS (1)
  1. ERBITUX [Suspect]
     Indication: TONSIL CANCER
     Route: 042
     Dates: end: 20080922

REACTIONS (2)
  - ASTHMA [None]
  - HYPOXIC ENCEPHALOPATHY [None]
